FAERS Safety Report 12473262 (Version 4)
Quarter: 2016Q4

REPORT INFORMATION
  Report Type: Spontaneous
  Country: US (occurrence: US)
  Receive Date: 20160616
  Receipt Date: 20161031
  Transmission Date: 20170207
  Serious: Yes (Other)
  Sender: FDA-Public Use
  Company Number: US-PFIZER INC-2016299920

PATIENT
  Age: 75 Year
  Sex: Male

DRUGS (1)
  1. VIAGRA [Suspect]
     Active Substance: SILDENAFIL CITRATE
     Indication: ERECTILE DYSFUNCTION
     Dosage: 100 MG, TAKE ABOUT 1 WEEK OR 2 WEEKS SOME 3 WEEKS APART
     Dates: start: 2013

REACTIONS (3)
  - Condition aggravated [Recovered/Resolved]
  - Visual field defect [Recovered/Resolved]
  - Visual acuity reduced [Recovered/Resolved]
